FAERS Safety Report 6058984-4 (Version None)
Quarter: 2009Q1

REPORT INFORMATION
  Report Type: 
  Country: None (occurrence: None)
  Receive Date: 20090130
  Receipt Date: 20090123
  Transmission Date: 20090719
  Serious: Yes (Death, Hospitalization)
  Sender: FDA-Public Use
  Company Number: A0765743A

PATIENT
  Sex: Male
  Weight: 98.2 kg

DRUGS (6)
  1. AVANDIA [Suspect]
     Dosage: 4MG PER DAY
     Route: 048
     Dates: start: 20000823, end: 20040405
  2. CELEBREX [Concomitant]
  3. NEXIUM [Concomitant]
  4. PROTONIX [Concomitant]
  5. LOTENSIN [Concomitant]
  6. CLARITIN [Concomitant]

REACTIONS (3)
  - HEART INJURY [None]
  - MYOCARDIAL INFARCTION [None]
  - SUDDEN CARDIAC DEATH [None]
